FAERS Safety Report 9107602 (Version 2)
Quarter: 2013Q2

REPORT INFORMATION
  Report Type: Spontaneous
  Country: IT (occurrence: IT)
  Receive Date: 20130221
  Receipt Date: 20130522
  Transmission Date: 20140414
  Serious: Yes (Life-Threatening, Other)
  Sender: FDA-Public Use
  Company Number: IT-AMGEN-ITASP2013011414

PATIENT
  Age: 82 Year
  Sex: Male
  Weight: 70 kg

DRUGS (9)
  1. VECTIBIX [Suspect]
     Indication: RECTOSIGMOID CANCER
     Dosage: UNK
     Route: 042
     Dates: start: 20120806, end: 20120806
  2. VECTIBIX [Suspect]
     Dosage: UNK
     Route: 042
     Dates: start: 20120806, end: 20120806
  3. SEREVENT [Concomitant]
     Dosage: 25 MUG, UNK
  4. THEODUR [Concomitant]
     Dosage: 300 MG, UNK
     Route: 048
  5. LASIX                              /00032601/ [Concomitant]
     Dosage: 25 MG, UNK
     Route: 048
  6. TAVOR                              /00273201/ [Concomitant]
     Dosage: 1 MG, UNK
     Route: 048
  7. SPIRIVA [Concomitant]
     Dosage: 18 MUG, UNK
  8. ZYLORIC [Concomitant]
     Dosage: 300 MG, UNK
     Route: 048
  9. LANITOP [Concomitant]
     Dosage: 0.6 %, UNK
     Route: 048

REACTIONS (1)
  - Bronchospasm [Recovered/Resolved]
